FAERS Safety Report 5232250-9 (Version None)
Quarter: 2007Q1

REPORT INFORMATION
  Report Type: 
  Country: None (occurrence: None)
  Receive Date: 20070207
  Receipt Date: 20070129
  Transmission Date: 20070707
  Serious: Yes (Other)
  Sender: FDA-Public Use
  Company Number: JP-BRISTOL-MYERS SQUIBB COMPANY-13568829

PATIENT
  Age: 74 Year
  Sex: Female

DRUGS (11)
  1. GATIFLO TABS 100 MG [Suspect]
     Indication: BRONCHITIS
     Route: 048
     Dates: start: 20061019, end: 20061021
  2. STARSIS [Suspect]
     Indication: DIABETES MELLITUS
     Route: 048
     Dates: start: 20060523, end: 20061020
  3. MUCODYNE [Concomitant]
     Route: 048
  4. CLARITHROMYCIN [Concomitant]
     Route: 048
  5. DOMENAN [Concomitant]
     Route: 048
  6. PREDONINE [Concomitant]
     Route: 048
  7. MENAMIN SR [Concomitant]
     Route: 048
  8. TAKEPRON [Concomitant]
     Route: 048
  9. LIPITOR [Concomitant]
     Route: 048
  10. BREDININ [Concomitant]
     Route: 048
  11. MYSLEE [Concomitant]
     Route: 048

REACTIONS (1)
  - HYPOGLYCAEMIC COMA [None]
